FAERS Safety Report 5341817-9 (Version None)
Quarter: 2007Q2

REPORT INFORMATION
  Report Type: 
  Country: None (occurrence: None)
  Receive Date: 20070530
  Receipt Date: 20070518
  Transmission Date: 20071010
  Serious: Yes (Hospitalization)
  Sender: FDA-Public Use
  Company Number: 2007-01313

PATIENT
  Age: 84 Year
  Sex: Female
  Weight: 45.6 kg

DRUGS (7)
  1. VELCADE [Suspect]
     Indication: MULTIPLE MYELOMA
     Dosage: 1.80 MG, UNK, INTRAVENOUS
     Route: 042
     Dates: start: 20070220, end: 20070307
  2. AMLODIPINE [Concomitant]
  3. VALPROATE SODIUM [Concomitant]
  4. CLODRONATE DISODIUM (CLODRONATE DISODIUM) [Concomitant]
  5. VALSARTAN [Concomitant]
  6. IBUPROFEN [Concomitant]
  7. ORAMORPH SR [Concomitant]

REACTIONS (5)
  - ATRIAL FIBRILLATION [None]
  - GASTROINTESTINAL HYPOMOTILITY [None]
  - HYPONATRAEMIA [None]
  - PARAPROTEINAEMIA [None]
  - PNEUMONIA ASPIRATION [None]
